FAERS Safety Report 6585575-9 (Version None)
Quarter: 2010Q1

REPORT INFORMATION
  Report Type: 
  Country: None (occurrence: None)
  Receive Date: 20100217
  Receipt Date: 20100209
  Transmission Date: 20100710
  Serious: Yes (Other)
  Sender: FDA-Public Use
  Company Number: GXKR2010FR01656

PATIENT
  Age: 34 Year
  Sex: Male

DRUGS (4)
  1. CISPLATIN [Suspect]
     Indication: SEMINOMA
     Dosage: 20 MG/M2, (3-CYCLE REGIMEN)
     Route: 065
  2. BLEOMYCIN (NGX) [Suspect]
     Indication: SEMINOMA
     Dosage: 30 MG/M2, (DAYS 1, 8, 15) (3-CYCLE REGIMEN)
     Route: 065
  3. PREDNISOLONE [Suspect]
     Dosage: MORE THAN 420MG
     Route: 065
  4. ETOPOSIDE [Concomitant]
     Indication: SEMINOMA
     Dosage: 100 MG/M2, (3-CYCLE REGIMEN)
     Route: 065

REACTIONS (5)
  - ARTERIAL BRUIT [None]
  - ARTERIAL THROMBOSIS [None]
  - GAIT DISTURBANCE [None]
  - MUSCLE SPASMS [None]
  - THROMBOEMBOLECTOMY [None]
